FAERS Safety Report 23262717 (Version 1)
Quarter: 2023Q4

REPORT INFORMATION
  Report Type: Spontaneous
  Country: US (occurrence: None)
  Receive Date: 20231203
  Receipt Date: 20231203
  Transmission Date: 20240110
  Serious: Yes (Disabling, Other)
  Sender: FDA-Public Use
  Company Number: None

PATIENT
  Age: 38 Year
  Sex: Female
  Weight: 81.65 kg

DRUGS (1)
  1. SUBOXONE [Suspect]
     Active Substance: BUPRENORPHINE HYDROCHLORIDE\NALOXONE HYDROCHLORIDE
     Indication: Pain
     Dosage: FREQUENCY : 3 TIMES A DAY;?
     Route: 060

REACTIONS (4)
  - Dental caries [None]
  - Therapy cessation [None]
  - Economic problem [None]
  - Tooth loss [None]

NARRATIVE: CASE EVENT DATE: 20130801
